FAERS Safety Report 17555278 (Version 1)
Quarter: 2020Q1

REPORT INFORMATION
  Report Type: Spontaneous
  Country: US (occurrence: US)
  Receive Date: 20200310
  Receipt Date: 20200310
  Transmission Date: 20200409
  Serious: Yes (Hospitalization)
  Sender: FDA-Public Use
  Company Number: None

PATIENT
  Age: 49 Year
  Sex: Female

DRUGS (9)
  1. METHOTREXATE. [Concomitant]
     Active Substance: METHOTREXATE
  2. CEPHALEXIN. [Concomitant]
     Active Substance: CEPHALEXIN
  3. ENBREL [Suspect]
     Active Substance: ETANERCEPT
     Indication: PSORIATIC ARTHROPATHY
     Route: 058
     Dates: start: 20180206
  4. FOLIC ACID. [Concomitant]
     Active Substance: FOLIC ACID
  5. PREDNISONE. [Concomitant]
     Active Substance: PREDNISONE
  6. RANITIDINE. [Concomitant]
     Active Substance: RANITIDINE
  7. NAPROXEN. [Concomitant]
     Active Substance: NAPROXEN
  8. ESCITALOPRAM [Suspect]
     Active Substance: ESCITALOPRAM OXALATE
  9. ERYTHROMYCIN OIN [Concomitant]

REACTIONS (5)
  - Kidney infection [None]
  - Condition aggravated [None]
  - Rash [None]
  - Nephrolithiasis [None]
  - Therapy cessation [None]

NARRATIVE: CASE EVENT DATE: 202002
